FAERS Safety Report 4328176-5 (Version None)
Quarter: 2004Q1

REPORT INFORMATION
  Report Type: 
  Country: None (occurrence: None)
  Receive Date: 20040325
  Receipt Date: 20031224
  Transmission Date: 20041129
  Serious: No
  Sender: FDA-Public Use
  Company Number: USA-2003-0012250

PATIENT
  Age: 47 Year
  Sex: Male

DRUGS (1)
  1. SPECTRACEF [Suspect]
     Indication: SINUSITIS
     Dosage: 200 MG, BID

REACTIONS (2)
  - CLOSTRIDIAL INFECTION [None]
  - DIARRHOEA [None]
